FAERS Safety Report 23350566 (Version 1)
Quarter: 2023Q4

REPORT INFORMATION
  Report Type: Spontaneous
  Country: CN (occurrence: None)
  Receive Date: 20231229
  Receipt Date: 20231229
  Transmission Date: 20240110
  Serious: Yes (Other)
  Sender: FDA-Public Use
  Company Number: 2023A291037

PATIENT
  Age: 62 Year
  Sex: Female

DRUGS (3)
  1. GEFITINIB [Suspect]
     Active Substance: GEFITINIB
     Indication: Lung adenocarcinoma stage IV
     Route: 048
     Dates: start: 20190323
  2. FURMONERTINIB [Concomitant]
     Dates: start: 202104
  3. SILIBININ [Concomitant]
     Active Substance: SILIBININ

REACTIONS (3)
  - Drug resistance [Unknown]
  - Malignant neoplasm progression [Recovered/Resolved]
  - Acquired gene mutation [Unknown]
